FAERS Safety Report 10484569 (Version 1)
Quarter: 2014Q3

REPORT INFORMATION
  Report Type: Report from Study
  Country: US (occurrence: US)
  Receive Date: 20140930
  Receipt Date: 20140930
  Transmission Date: 20150326
  Serious: No
  Sender: FDA-Public Use
  Company Number: US-ALEXION-A201102466

PATIENT
  Sex: Female

DRUGS (1)
  1. SOLIRIS [Suspect]
     Active Substance: ECULIZUMAB
     Indication: PAROXYSMAL NOCTURNAL HAEMOGLOBINURIA
     Dosage: UNK
     Route: 042

REACTIONS (7)
  - Depression [Unknown]
  - Diabetes mellitus [Unknown]
  - Asthma [Unknown]
  - Somnolence [Unknown]
  - Fatigue [Unknown]
  - Increased tendency to bruise [Unknown]
  - Anaemia [Unknown]
